FAERS Safety Report 4303823-2 (Version None)
Quarter: 2004Q1

REPORT INFORMATION
  Report Type: 
  Country: None (occurrence: None)
  Receive Date: 20040224
  Receipt Date: 20040224
  Transmission Date: 20041129
  Serious: Yes (Hospitalization)
  Sender: FDA-Public Use
  Company Number: None

PATIENT
  Age: 38 Year
  Sex: Female
  Weight: 81.6475 kg

DRUGS (10)
  1. LITHIUM CARBONATE [Suspect]
     Indication: BIPOLAR DISORDER
     Dosage: 600 MG PO BID
     Route: 048
  2. LITHOBID [Suspect]
     Indication: BIPOLAR DISORDER
     Dosage: 600 MG PO BID
     Route: 048
  3. MIRTAZAPINE [Concomitant]
  4. TRAZODONE HCL [Concomitant]
  5. SERTRALINE HCL [Concomitant]
  6. LAMOTRIGINE [Concomitant]
  7. COMBIVIR [Concomitant]
  8. VIRACEPT [Concomitant]
  9. FLUCONAZOLE [Concomitant]
  10. CLONAZEPAM [Concomitant]

REACTIONS (4)
  - DYSGEUSIA [None]
  - DYSPHEMIA [None]
  - TREMOR [None]
  - VISUAL DISTURBANCE [None]
